FAERS Safety Report 25179144 (Version 1)
Quarter: 2025Q2

REPORT INFORMATION
  Report Type: Spontaneous
  Country: FR (occurrence: FR)
  Receive Date: 20250409
  Receipt Date: 20250409
  Transmission Date: 20250716
  Serious: Yes (Hospitalization, Other)
  Sender: PFIZER
  Company Number: None

PATIENT
  Age: 49 Year
  Sex: Male

DRUGS (5)
  1. CYTARABINE [Suspect]
     Active Substance: CYTARABINE
     Indication: Lymphoma
     Route: 042
     Dates: start: 20110504, end: 20110507
  2. CYTARABINE [Suspect]
     Active Substance: CYTARABINE
     Indication: Transplant
  3. CARMUSTINE [Suspect]
     Active Substance: CARMUSTINE
     Indication: Transplant
     Route: 042
     Dates: start: 20110503, end: 20110503
  4. ETOPOSIDE [Suspect]
     Active Substance: ETOPOSIDE
     Indication: Transplant
     Route: 042
     Dates: start: 20110504, end: 20110507
  5. MELPHALAN [Suspect]
     Active Substance: MELPHALAN
     Indication: Transplant
     Route: 042
     Dates: start: 20110508, end: 20110508

REACTIONS (6)
  - Toxic skin eruption [Unknown]
  - Impetigo [Unknown]
  - Colitis [Unknown]
  - Pyrexia [Recovered/Resolved]
  - Abdominal pain lower [Unknown]
  - Diarrhoea [Unknown]

NARRATIVE: CASE EVENT DATE: 20110510
